FAERS Safety Report 7487838-1 (Version None)
Quarter: 2011Q2

REPORT INFORMATION
  Report Type: 
  Country: None (occurrence: None)
  Receive Date: 20110518
  Receipt Date: 20110512
  Transmission Date: 20111010
  Serious: Yes (Other)
  Sender: FDA-Public Use
  Company Number: JP-EISAI INC-E2090-01609-SPO-JP

PATIENT
  Sex: Female

DRUGS (2)
  1. BETAMETHASONE [Concomitant]
     Route: 048
  2. ZONISAMIDE [Suspect]
     Dosage: UNKNOWN
     Route: 048

REACTIONS (1)
  - TOXIC EPIDERMAL NECROLYSIS [None]
